FAERS Safety Report 24274144 (Version 3)
Quarter: 2024Q4

REPORT INFORMATION
  Report Type: Spontaneous
  Country: JP (occurrence: JP)
  Receive Date: 20240902
  Receipt Date: 20241210
  Transmission Date: 20250114
  Serious: Yes (Life-Threatening, Hospitalization, Other)
  Sender: ALEXION PHARMACEUTICALS
  Company Number: 2023A150722

PATIENT
  Age: 75 Year
  Weight: 51 kg

DRUGS (38)
  1. IMFINZI [Suspect]
     Active Substance: DURVALUMAB
     Indication: Bile duct cancer
     Dosage: 1500 MILLIGRAM, Q3W
  2. IMFINZI [Suspect]
     Active Substance: DURVALUMAB
     Dosage: 1500 MILLIGRAM, Q3W
     Route: 042
  3. IMFINZI [Suspect]
     Active Substance: DURVALUMAB
     Dosage: 1500 MILLIGRAM, Q3W
  4. IMFINZI [Suspect]
     Active Substance: DURVALUMAB
     Dosage: 1500 MILLIGRAM, Q3W
     Route: 042
  5. IMFINZI [Suspect]
     Active Substance: DURVALUMAB
  6. IMFINZI [Suspect]
     Active Substance: DURVALUMAB
     Route: 041
  7. IMFINZI [Suspect]
     Active Substance: DURVALUMAB
  8. IMFINZI [Suspect]
     Active Substance: DURVALUMAB
     Route: 041
  9. EDOXABAN TOSYLATE [Suspect]
     Active Substance: EDOXABAN TOSYLATE
     Indication: Hypertension
     Dosage: DOSE UNKNOWN
  10. EDOXABAN TOSYLATE [Suspect]
     Active Substance: EDOXABAN TOSYLATE
     Dosage: DOSE UNKNOWN
     Route: 048
  11. EDOXABAN TOSYLATE [Suspect]
     Active Substance: EDOXABAN TOSYLATE
     Dosage: DOSE UNKNOWN
  12. EDOXABAN TOSYLATE [Suspect]
     Active Substance: EDOXABAN TOSYLATE
     Dosage: DOSE UNKNOWN
     Route: 048
  13. URSO [Suspect]
     Active Substance: URSODIOL
     Indication: Hepatic function abnormal
     Dosage: DOSE UNKNOWN
  14. URSO [Suspect]
     Active Substance: URSODIOL
     Indication: Hepatic function abnormal
     Dosage: DOSE UNKNOWN
     Route: 048
  15. URSO [Suspect]
     Active Substance: URSODIOL
  16. URSO [Suspect]
     Active Substance: URSODIOL
     Route: 048
  17. GEMCITABINE HYDROCHLORIDE [Suspect]
     Active Substance: GEMCITABINE HYDROCHLORIDE
     Indication: Bile duct cancer
     Dosage: DOSE UNKNOWN
  18. GEMCITABINE HYDROCHLORIDE [Suspect]
     Active Substance: GEMCITABINE HYDROCHLORIDE
     Indication: Bile duct cancer
     Dosage: DOSE UNKNOWN
  19. GEMCITABINE HYDROCHLORIDE [Suspect]
     Active Substance: GEMCITABINE HYDROCHLORIDE
     Dosage: DOSE UNKNOWN
     Route: 065
  20. GEMCITABINE HYDROCHLORIDE [Suspect]
     Active Substance: GEMCITABINE HYDROCHLORIDE
     Dosage: DOSE UNKNOWN
     Route: 065
  21. GEMCITABINE HYDROCHLORIDE [Suspect]
     Active Substance: GEMCITABINE HYDROCHLORIDE
     Dosage: DOSE UNKNOWN
     Route: 065
  22. GEMCITABINE HYDROCHLORIDE [Suspect]
     Active Substance: GEMCITABINE HYDROCHLORIDE
     Dosage: DOSE UNKNOWN
     Route: 065
  23. CISPLATIN [Suspect]
     Active Substance: CISPLATIN
     Indication: Bile duct cancer
     Dosage: DOSE UNKNOWN
  24. CISPLATIN [Suspect]
     Active Substance: CISPLATIN
     Indication: Bile duct cancer
     Dosage: DOSE UNKNOWN
     Route: 065
  25. CISPLATIN [Suspect]
     Active Substance: CISPLATIN
     Dosage: DOSE UNKNOWN
     Route: 065
  26. XARELTO [Concomitant]
     Active Substance: RIVAROXABAN
     Indication: Arrhythmia
     Route: 048
  27. XARELTO [Concomitant]
     Active Substance: RIVAROXABAN
  28. BISOPROLOL [Concomitant]
     Active Substance: BISOPROLOL
     Indication: Arrhythmia
     Route: 048
  29. BISOPROLOL [Concomitant]
     Active Substance: BISOPROLOL
  30. ALLOPURINOL [Concomitant]
     Active Substance: ALLOPURINOL
     Indication: Hyperuricaemia
     Dosage: 100 MILLIGRAM
  31. ALLOPURINOL [Concomitant]
     Active Substance: ALLOPURINOL
     Dosage: 100 MILLIGRAM
     Route: 048
  32. ALLOPURINOL [Concomitant]
     Active Substance: ALLOPURINOL
     Dosage: 100 MILLIGRAM
  33. ALLOPURINOL [Concomitant]
     Active Substance: ALLOPURINOL
     Dosage: 100 MILLIGRAM
     Route: 048
  34. MAGNESIUM OXIDE [Concomitant]
     Active Substance: MAGNESIUM OXIDE
     Indication: Constipation
     Route: 048
  35. MAGNESIUM OXIDE [Concomitant]
     Active Substance: MAGNESIUM OXIDE
  36. CISPLATIN [Suspect]
     Active Substance: CISPLATIN
  37. TAMSULOSIN HYDROCHLORIDE [Concomitant]
     Active Substance: TAMSULOSIN HYDROCHLORIDE
     Indication: Benign prostatic hyperplasia
     Route: 048
  38. TAMSULOSIN HYDROCHLORIDE [Concomitant]
     Active Substance: TAMSULOSIN HYDROCHLORIDE

REACTIONS (8)
  - Platelet count decreased [Recovered/Resolved]
  - Pyrexia [Recovered/Resolved]
  - Neutrophil count decreased [Recovered/Resolved]
  - Fracture [Unknown]
  - Pyrexia [Recovered/Resolved]
  - Platelet count decreased [Recovered/Resolved]
  - Neutrophil count decreased [Recovered/Resolved]
  - Fracture [Unknown]
